FAERS Safety Report 5999295-2 (Version None)
Quarter: 2008Q4

REPORT INFORMATION
  Report Type: 
  Country: None (occurrence: None)
  Receive Date: 20081215
  Receipt Date: 20081210
  Transmission Date: 20090506
  Serious: Yes (Hospitalization)
  Sender: FDA-Public Use
  Company Number: FR-BRISTOL-MYERS SQUIBB COMPANY-14441141

PATIENT
  Age: 85 Year
  Sex: Male

DRUGS (10)
  1. QUESTRAN [Suspect]
     Route: 048
  2. ARAVA [Concomitant]
     Indication: RHEUMATOID ARTHRITIS
     Dosage: 1 TAB
     Route: 048
     Dates: start: 20070604, end: 20080901
  3. CORTANCYL [Concomitant]
     Indication: RHEUMATOID ARTHRITIS
     Route: 048
     Dates: start: 20080803
  4. TENORMIN [Concomitant]
     Indication: HYPERTENSION
     Dosage: 1 TAB
     Route: 048
  5. STABLON [Concomitant]
     Indication: DEPRESSION
     Route: 048
     Dates: start: 20080803
  6. NEXIUM [Concomitant]
     Dosage: 1 TAB
     Route: 048
     Dates: start: 20080803
  7. CACIT D3 [Concomitant]
     Indication: OSTEOPOROSIS
     Route: 048
     Dates: start: 20080803
  8. XATRAL LP [Concomitant]
     Indication: BENIGN PROSTATIC HYPERPLASIA
     Dosage: 1 TAB
     Route: 048
     Dates: start: 20080803
  9. LYRICA [Concomitant]
     Indication: NEURALGIA
     Dosage: 2 CAPSULES
     Route: 048
     Dates: start: 20080803
  10. ACTONEL [Concomitant]
     Indication: OSTEOPOROSIS
     Route: 048
     Dates: start: 20080803

REACTIONS (2)
  - METABOLIC ACIDOSIS [None]
  - RENAL FAILURE [None]
